FAERS Safety Report 15214406 (Version 1)
Quarter: 2018Q3

REPORT INFORMATION
  Report Type: Report from Study
  Country: FR (occurrence: FR)
  Receive Date: 20180730
  Receipt Date: 20180730
  Transmission Date: 20181010
  Serious: Yes (Hospitalization, Other)
  Sender: FDA-Public Use
  Company Number: FR-TEVA-2018-FR-931978

PATIENT
  Sex: Female

DRUGS (6)
  1. 6?MERCAPTOPURINE MONOHYDRATE [Suspect]
     Active Substance: MERCAPTOPURINE
     Indication: ACUTE LYMPHOCYTIC LEUKAEMIA
     Dosage: 37.85 MILLIGRAM DAILY;  1X/DAY
     Route: 048
     Dates: start: 20171205
  2. PEGASPARGASE [Suspect]
     Active Substance: PEGASPARGASE
     Indication: ACUTE LYMPHOCYTIC LEUKAEMIA
     Dosage: 1875 IU (INTERNATIONAL UNIT) DAILY;  1X/DAY
     Route: 042
     Dates: start: 20171212, end: 20171212
  3. BACTRIM NOURISSONS ET ENFANTS [Concomitant]
     Indication: PRODUCT USED FOR UNKNOWN INDICATION
     Route: 065
  4. VINCRISTINE [Suspect]
     Active Substance: VINCRISTINE
     Indication: ACUTE LYMPHOCYTIC LEUKAEMIA
     Dosage: 1.15 MILLIGRAM DAILY;  1X/DAY
     Route: 042
     Dates: start: 20171212, end: 20171212
  5. DEXAMETHASONE. [Suspect]
     Active Substance: DEXAMETHASONE
     Indication: ACUTE LYMPHOCYTIC LEUKAEMIA
     Dosage: 4 MILLIGRAM DAILY;  1X/DAY
     Route: 048
     Dates: start: 20171205, end: 20171210
  6. METHOTREXATE. [Suspect]
     Active Substance: METHOTREXATE
     Indication: ACUTE LYMPHOCYTIC LEUKAEMIA
     Dosage: 18.75 MILLIGRAM DAILY; 1X/DAY
     Route: 048
     Dates: start: 20171212, end: 20171212

REACTIONS (1)
  - Pancreatitis [Unknown]

NARRATIVE: CASE EVENT DATE: 20171216
